FAERS Safety Report 18695836 (Version 1)
Quarter: 2021Q1

REPORT INFORMATION
  Report Type: Spontaneous
  Country: US (occurrence: US)
  Receive Date: 20210104
  Receipt Date: 20210104
  Transmission Date: 20210419
  Serious: Yes (Life-Threatening)
  Sender: FDA-Public Use
  Company Number: None

PATIENT
  Age: 65 Year
  Sex: Female
  Weight: 78.6 kg

DRUGS (1)
  1. IOHEXOL [Suspect]
     Active Substance: IOHEXOL
     Dosage: ?          OTHER FREQUENCY:ONCE;?
     Route: 040

REACTIONS (6)
  - Dyspnoea [None]
  - Wheezing [None]
  - Contrast media reaction [None]
  - Stridor [None]
  - Respiratory arrest [None]
  - Anaphylactic reaction [None]
